FAERS Safety Report 20907189 (Version 1)
Quarter: 2022Q2

REPORT INFORMATION
  Report Type: Spontaneous
  Country: US (occurrence: None)
  Receive Date: 20220602
  Receipt Date: 20220602
  Transmission Date: 20220721
  Serious: Yes (Hospitalization)
  Sender: FDA-Public Use
  Company Number: None

PATIENT
  Age: 66 Year
  Sex: Female
  Weight: 110.25 kg

DRUGS (6)
  1. OZEMPIC [Suspect]
     Active Substance: SEMAGLUTIDE
     Indication: Type 2 diabetes mellitus
     Dosage: OTHER QUANTITY : 1 INJECTION(S);?OTHER FREQUENCY : ONCE WEEKLY;?
     Route: 058
     Dates: start: 20020220, end: 20020515
  2. LOSARTAN [Concomitant]
     Active Substance: LOSARTAN
  3. amlodepine [Concomitant]
  4. ALLOPURINOL [Concomitant]
     Active Substance: ALLOPURINOL
  5. VITAMIN D3 [Concomitant]
     Active Substance: CHOLECALCIFEROL
  6. VITAMIN B12 [Concomitant]
     Active Substance: CYANOCOBALAMIN

REACTIONS (4)
  - Pancreatitis [None]
  - Cholelithiasis [None]
  - Cholecystitis infective [None]
  - Atrial fibrillation [None]

NARRATIVE: CASE EVENT DATE: 20220515
